FAERS Safety Report 8032018-4 (Version None)
Quarter: 2012Q1

REPORT INFORMATION
  Report Type: 
  Country: None (occurrence: None)
  Receive Date: 20120109
  Receipt Date: 20110921
  Transmission Date: 20120608
  Serious: No
  Sender: FDA-Public Use
  Company Number: US-ABBOTT-11P-163-0857247-00

PATIENT
  Age: 71 Year
  Sex: Male
  Weight: 68.4 kg

DRUGS (3)
  1. LIPITOR [Concomitant]
     Indication: CARDIAC OPERATION
     Route: 048
     Dates: start: 20080101, end: 20110828
  2. PEPCID [Concomitant]
     Indication: PRODUCT USED FOR UNKNOWN INDICATION
  3. VICODIN [Suspect]
     Indication: PRODUCT USED FOR UNKNOWN INDICATION

REACTIONS (1)
  - FEELING ABNORMAL [None]
